FAERS Safety Report 15905255 (Version 1)
Quarter: 2019Q1

REPORT INFORMATION
  Report Type: Spontaneous
  Country: US (occurrence: US)
  Receive Date: 20190204
  Receipt Date: 20190204
  Transmission Date: 20190417
  Serious: Yes (Death, Hospitalization)
  Sender: FDA-Public Use
  Company Number: US-BAYER-2018-185165

PATIENT
  Age: 75 Year
  Sex: Female
  Weight: 106.6 kg

DRUGS (17)
  1. ATORVASTATIN [Concomitant]
     Active Substance: ATORVASTATIN
     Dosage: 40 MG, UNK
     Route: 065
     Dates: start: 20150312, end: 20160930
  2. LORATADINE. [Concomitant]
     Active Substance: LORATADINE
     Dosage: UNK
     Route: 065
  3. OMEPRAZOLE. [Concomitant]
     Active Substance: OMEPRAZOLE
     Dosage: UNK
     Route: 065
  4. CILOSTAZOL. [Suspect]
     Active Substance: CILOSTAZOL
     Indication: PRODUCT USED FOR UNKNOWN INDICATION
     Dosage: 50 MG
     Route: 065
     Dates: start: 20150819, end: 20160930
  5. SPIRONOLACTONE. [Concomitant]
     Active Substance: SPIRONOLACTONE
     Dosage: 25 MG, UNK
     Route: 065
     Dates: start: 20050407, end: 20160930
  6. BAYER ASPIRIN [Suspect]
     Active Substance: ASPIRIN
     Indication: PRODUCT USED FOR UNKNOWN INDICATION
     Dosage: UNK
     Route: 065
  7. AMLODIPINE BESYLATE. [Concomitant]
     Active Substance: AMLODIPINE BESYLATE
     Dosage: 5 MG, UNK
     Route: 065
     Dates: start: 20070925, end: 20160930
  8. FUROSEMIDE. [Concomitant]
     Active Substance: FUROSEMIDE
     Dosage: 40 MG, UNK
     Route: 065
     Dates: start: 20050406, end: 20160930
  9. LANTUS [Concomitant]
     Active Substance: INSULIN GLARGINE
     Dosage: UNK
     Route: 065
  10. METOPROLOL TARTRATE. [Concomitant]
     Active Substance: METOPROLOL TARTRATE
     Dosage: UNK
     Route: 065
     Dates: start: 20050527, end: 20160930
  11. XARELTO [Suspect]
     Active Substance: RIVAROXABAN
     Indication: THROMBOSIS PROPHYLAXIS
  12. ISOSORBIDE MONONITRATE. [Concomitant]
     Active Substance: ISOSORBIDE MONONITRATE
     Dosage: 30 MG, UNK
     Route: 065
     Dates: start: 20050527, end: 20160930
  13. CLOPIDOGREL [Suspect]
     Active Substance: CLOPIDOGREL BISULFATE
     Indication: PRODUCT USED FOR UNKNOWN INDICATION
     Dosage: UNK
     Route: 065
  14. LEVOTHYROXINE. [Concomitant]
     Active Substance: LEVOTHYROXINE
     Dosage: 75 ?G, UNK
     Route: 065
     Dates: start: 20080428, end: 20160930
  15. XARELTO [Suspect]
     Active Substance: RIVAROXABAN
     Indication: CEREBROVASCULAR ACCIDENT PROPHYLAXIS
  16. XARELTO [Suspect]
     Active Substance: RIVAROXABAN
     Indication: ATRIAL FIBRILLATION
     Dosage: 15 MG, UNK
     Route: 048
     Dates: start: 20160520, end: 20160927
  17. INSULIN [Concomitant]
     Active Substance: INSULIN NOS
     Dosage: UNK
     Route: 065

REACTIONS (1)
  - Cerebral haemorrhage [Fatal]

NARRATIVE: CASE EVENT DATE: 20160927
